FAERS Safety Report 12290124 (Version 2)
Quarter: 2016Q2

REPORT INFORMATION
  Report Type: Spontaneous
  Country: JP (occurrence: JP)
  Receive Date: 20160421
  Receipt Date: 20160520
  Transmission Date: 20160815
  Serious: Yes (Other)
  Sender: FDA-Public Use
  Company Number: JP-GLAXOSMITHKLINE-JP2016JPN053016

PATIENT
  Sex: Male
  Weight: 67 kg

DRUGS (4)
  1. SILDENAFIL CITRATE. [Concomitant]
     Active Substance: SILDENAFIL CITRATE
     Dosage: 60 MG, 1D
  2. FLOLAN [Suspect]
     Active Substance: EPOPROSTENOL SODIUM
     Indication: PULMONARY HYPERTENSION
     Dosage: UNK
     Route: 042
  3. FLOLAN [Suspect]
     Active Substance: EPOPROSTENOL SODIUM
     Indication: PULMONARY VENO-OCCLUSIVE DISEASE
     Dosage: 0.5 UNK, UNK
     Route: 042
  4. FLOLAN [Suspect]
     Active Substance: EPOPROSTENOL SODIUM
     Dosage: UNK
     Route: 042

REACTIONS (6)
  - Condition aggravated [Recovering/Resolving]
  - Respiratory failure [Recovering/Resolving]
  - Computerised tomogram thorax abnormal [Unknown]
  - Disease progression [Unknown]
  - Hypoxia [Recovering/Resolving]
  - Dyspnoea [Recovering/Resolving]
